FAERS Safety Report 9003757 (Version 1)
Quarter: 2013Q1

REPORT INFORMATION
  Report Type: Spontaneous
  Country: US (occurrence: US)
  Receive Date: 20130108
  Receipt Date: 20130108
  Transmission Date: 20140127
  Serious: No
  Sender: FDA-Public Use
  Company Number: US-GLAXOSMITHKLINE-A0973855A

PATIENT
  Age: 49 Year
  Sex: Male

DRUGS (2)
  1. LOVAZA [Suspect]
     Indication: BLOOD TRIGLYCERIDES INCREASED
     Dosage: 2CAP PER DAY
     Route: 048
     Dates: start: 201003, end: 20120416
  2. MULTIPLE VITAMIN [Concomitant]

REACTIONS (2)
  - Low density lipoprotein increased [Not Recovered/Not Resolved]
  - Blood cholesterol increased [Unknown]
